FAERS Safety Report 4770865-2 (Version None)
Quarter: 2005Q3

REPORT INFORMATION
  Report Type: 
  Country: None (occurrence: None)
  Receive Date: 20050914
  Receipt Date: 20050905
  Transmission Date: 20060218
  Serious: Yes (Other)
  Sender: FDA-Public Use
  Company Number: 2005124877

PATIENT
  Age: 84 Year
  Sex: Female
  Weight: 50 kg

DRUGS (5)
  1. AMLODIPINE [Suspect]
     Indication: HYPERTENSION
     Dosage: (5 MG), ORAL
     Route: 048
     Dates: start: 20050723, end: 20050808
  2. ANTISTAX ^BOEHRINGER INGELHEIM^ (VITIS VINIFERA EXTRACT) [Suspect]
     Indication: ILL-DEFINED DISORDER
     Dosage: (BID INTERVAL: INTERMITTENTLY), ORAL
     Route: 048
     Dates: end: 20050808
  3. SUSTAC (GLYCERYL TRINITRATE) [Concomitant]
  4. LATANOPROST [Concomitant]
  5. BEZALIP-MONO (BEZAFIBRATE) [Concomitant]

REACTIONS (2)
  - CONFUSIONAL STATE [None]
  - DISORIENTATION [None]
